FAERS Safety Report 20091063 (Version 2)
Quarter: 2022Q4

REPORT INFORMATION
  Report Type: Spontaneous
  Country: DE (occurrence: DE)
  Receive Date: 20211119
  Receipt Date: 20221213
  Transmission Date: 20230112
  Serious: Yes (Hospitalization, Other)
  Sender: FDA-Public Use
  Company Number: DE-ADRED-07014-03

PATIENT
  Age: 73 Year
  Sex: Female
  Weight: 95 kg

DRUGS (13)
  1. METHOTREXATE [Suspect]
     Active Substance: METHOTREXATE
     Indication: Product used for unknown indication
     Dosage: SCHEMA
     Route: 065
  2. HUMALOG MIX50/50 [Concomitant]
     Active Substance: INSULIN LISPRO
     Dosage: 50 IE, 56-0-36-0
     Route: 065
  3. APIXABAN [Concomitant]
     Active Substance: APIXABAN
     Dosage: 30 MILLIGRAM, (30 MG, 1-0-0-0)
     Route: 065
  4. VITAMIN D [Concomitant]
     Active Substance: VITAMIN D NOS
     Dosage: SCHEMA
     Route: 065
  5. PANTOPRAZOLE SODIUM [Concomitant]
     Active Substance: PANTOPRAZOLE SODIUM
     Dosage: 40 MILLIGRAM, (40 MG, 1-0-0-0)
     Route: 065
  6. CARVEDILOL [Concomitant]
     Active Substance: CARVEDILOL
     Dosage: 12.5 MILLIGRAM, (12.5 MG, 1-0-1-0)
     Route: 065
  7. TORSEMIDE [Concomitant]
     Active Substance: TORSEMIDE
     Dosage: 10 MILLIGRAM, (10 MG, 1-0-0-0)
     Route: 065
  8. CELECOXIB [Concomitant]
     Active Substance: CELECOXIB
     Dosage: 100 MILLIGRAM, (100 MG, 1-0-0-0)
  9. METFORMIN [Concomitant]
     Active Substance: METFORMIN HYDROCHLORIDE
     Dosage: 1000 MILLIGRAM, (1000 MG, 1-0-1-0)
     Route: 065
  10. ATORVASTATIN [Concomitant]
     Active Substance: ATORVASTATIN
     Dosage: 40 MILLIGRAM, (40 MG, 0-0-1-0)
     Route: 065
  11. TILIDINE [Concomitant]
     Active Substance: TILIDINE
     Dosage: 50 MILLIGRAM, (50 MG, 0-0-1-0)
     Route: 065
  12. MOXONIDINE [Concomitant]
     Active Substance: MOXONIDINE
     Dosage: 0.2 MILLIGRAM, (0.2 MG, 1-0-1-0)
     Route: 065
  13. CANDESARTAN CILEXETIL\HYDROCHLOROTHIAZIDE [Concomitant]
     Active Substance: CANDESARTAN CILEXETIL\HYDROCHLOROTHIAZIDE
     Dosage: 1 DOSAGE FORM, QD (32|12.5 MG, 1-0-0-0 )
     Route: 065

REACTIONS (10)
  - General physical health deterioration [Unknown]
  - Flank pain [Unknown]
  - Weight increased [Unknown]
  - Renal colic [Unknown]
  - Calculus urinary [Unknown]
  - Renal impairment [Unknown]
  - Abdominal pain [Unknown]
  - Postrenal failure [Unknown]
  - Urinary tract infection [Unknown]
  - Candida infection [Unknown]
